FAERS Safety Report 5117651-1 (Version None)
Quarter: 2006Q3

REPORT INFORMATION
  Report Type: 
  Country: None (occurrence: None)
  Receive Date: 20060926
  Receipt Date: 20060904
  Transmission Date: 20061208
  Serious: Yes (Hospitalization)
  Sender: FDA-Public Use
  Company Number: FR200609000528

PATIENT
  Age: 30 Year
  Sex: Male

DRUGS (1)
  1. PROZAC [Suspect]
     Indication: BORDERLINE PERSONALITY DISORDER
     Dosage: 40 MG, DAILY (1/D), ORAL
     Route: 048
     Dates: start: 20030101

REACTIONS (2)
  - PELVIC FRACTURE [None]
  - SUICIDE ATTEMPT [None]
